FAERS Safety Report 8228143-5 (Version None)
Quarter: 2012Q1

REPORT INFORMATION
  Report Type: 
  Country: None (occurrence: None)
  Receive Date: 20120322
  Receipt Date: 20111215
  Transmission Date: 20120608
  Serious: No
  Sender: FDA-Public Use
  Company Number: US-BRISTOL-MYERS SQUIBB COMPANY-16296170

PATIENT
  Age: 89 Year
  Sex: Female

DRUGS (1)
  1. ERBITUX [Suspect]
     Dosage: LAST TREATMENT:12DEC2011

REACTIONS (2)
  - DRY SKIN [None]
  - LIP PAIN [None]
